FAERS Safety Report 11824761 (Version 1)
Quarter: 2015Q4

REPORT INFORMATION
  Report Type: Spontaneous
  Country: IL (occurrence: IL)
  Receive Date: 20151210
  Receipt Date: 20151210
  Transmission Date: 20160305
  Serious: Yes (Other)
  Sender: FDA-Public Use
  Company Number: IL-RARE DISEASE THERAPEUTICS, INC.-1045353

PATIENT
  Sex: Male

DRUGS (1)
  1. PURIXAN [Suspect]
     Active Substance: MERCAPTOPURINE
     Indication: CROHN^S DISEASE

REACTIONS (5)
  - Portal hypertension [Unknown]
  - Drug-induced liver injury [Unknown]
  - Off label use [None]
  - Hyperammonaemic encephalopathy [Unknown]
  - Portal shunt [Unknown]
